FAERS Safety Report 8471756-6 (Version None)
Quarter: 2012Q2

REPORT INFORMATION
  Report Type: 
  Country: None (occurrence: None)
  Receive Date: 20120627
  Receipt Date: 20110928
  Transmission Date: 20120825
  Serious: Yes (Other)
  Sender: FDA-Public Use
  Company Number: US-ROCHE-1000176

PATIENT
  Age: 49 Year
  Sex: Male

DRUGS (5)
  1. VALGANCICLOVIR [Suspect]
     Indication: CYTOMEGALOVIRUS CHORIORETINITIS
  2. VALGANCICLOVIR [Suspect]
     Route: 050
  3. FOSCARNET [Concomitant]
     Dosage: 2.4 MG/0.1 CC
     Route: 050
  4. GANCICLOVIR [Concomitant]
     Route: 042
  5. GANCICLOVIR [Concomitant]
     Dosage: 2 MG/0.1 CC

REACTIONS (1)
  - BONE MARROW FAILURE [None]
